FAERS Safety Report 19814064 (Version 1)
Quarter: 2021Q3

REPORT INFORMATION
  Report Type: Spontaneous
  Country: US (occurrence: US)
  Receive Date: 20210910
  Receipt Date: 20210910
  Transmission Date: 20211014
  Serious: Yes (Other)
  Sender: FDA-Public Use
  Company Number: None

PATIENT
  Age: 79 Year
  Sex: Male
  Weight: 68.7 kg

DRUGS (1)
  1. BARICITINIB. [Suspect]
     Active Substance: BARICITINIB
     Route: 048
     Dates: start: 20210905, end: 20210907

REACTIONS (2)
  - Haemoglobin decreased [None]
  - Pneumonia klebsiella [None]

NARRATIVE: CASE EVENT DATE: 20210907
